FAERS Safety Report 18264075 (Version 7)
Quarter: 2020Q4

REPORT INFORMATION
  Report Type: Report from Study
  Country: AU (occurrence: AU)
  Receive Date: 20200914
  Receipt Date: 20201130
  Transmission Date: 20210113
  Serious: Yes (Death, Hospitalization)
  Sender: FDA-Public Use
  Company Number: AU-EISAI MEDICAL RESEARCH-EC-2020-080392

PATIENT
  Age: 64 Year
  Sex: Male
  Weight: 62.5 kg

DRUGS (10)
  1. ENTECAVIR. [Concomitant]
     Active Substance: ENTECAVIR
     Dates: start: 201810
  2. MICARDIS [Concomitant]
     Active Substance: TELMISARTAN
     Dates: start: 20200505
  3. ACETAMINOPHEN. [Concomitant]
     Active Substance: ACETAMINOPHEN
     Dates: start: 20200314
  4. LENVATINIB [Suspect]
     Active Substance: LENVATINIB
     Indication: HEPATOCELLULAR CARCINOMA
     Route: 048
     Dates: start: 20200311, end: 20200814
  5. MILK (+) MINERAL OIL (+) SENNOSIDES [Concomitant]
     Dates: start: 20200318
  6. PLACEBO [Suspect]
     Active Substance: UNSPECIFIED INGREDIENT
     Indication: HEPATOCELLULAR CARCINOMA
     Route: 042
     Dates: start: 20200311, end: 20200722
  7. LEVOTHYROXINE SODIUM. [Concomitant]
     Active Substance: LEVOTHYROXINE SODIUM
     Dates: start: 20200812
  8. CARBONYL IRON [Concomitant]
     Active Substance: IRON
     Dates: start: 20200428
  9. LOPERAMIDE [Concomitant]
     Active Substance: LOPERAMIDE
     Dates: start: 20200605
  10. PLACEBO [Suspect]
     Active Substance: UNSPECIFIED INGREDIENT
     Route: 042
     Dates: start: 20200812, end: 20200812

REACTIONS (1)
  - Embolic stroke [Not Recovered/Not Resolved]

NARRATIVE: CASE EVENT DATE: 20200906
